FAERS Safety Report 5758377-0 (Version None)
Quarter: 2008Q2

REPORT INFORMATION
  Report Type: 
  Country: None (occurrence: None)
  Receive Date: 20080530
  Receipt Date: 20080516
  Transmission Date: 20081010
  Serious: Yes (Death)
  Sender: FDA-Public Use
  Company Number: GXKR2008KR04512

PATIENT
  Age: 74 Year
  Sex: Male

DRUGS (2)
  1. CARBOPLATIN [Suspect]
     Indication: PLEURAL MESOTHELIOMA MALIGNANT
  2. PEMETREXED(PEMETREXED) [Suspect]
     Indication: PLEURAL MESOTHELIOMA MALIGNANT

REACTIONS (5)
  - CARDIAC ARREST [None]
  - OLIGURIA [None]
  - PULMONARY OEDEMA [None]
  - TREATMENT NONCOMPLIANCE [None]
  - TUMOUR LYSIS SYNDROME [None]
